FAERS Safety Report 9786887 (Version 1)
Quarter: 2013Q4

REPORT INFORMATION
  Report Type: Spontaneous
  Country: FR (occurrence: FR)
  Receive Date: 20131227
  Receipt Date: 20131227
  Transmission Date: 20140711
  Serious: Yes (Life-Threatening)
  Sender: FDA-Public Use
  Company Number: FR-ABBVIE-13P-056-1182783-00

PATIENT
  Age: 11 Month
  Sex: Female

DRUGS (6)
  1. ULTANE [Suspect]
     Indication: CARDIAC OPERATION
     Route: 055
     Dates: start: 20131104, end: 20131104
  2. ULTANE [Suspect]
     Indication: ANAESTHESIA
  3. CEFAZOLINE [Suspect]
     Indication: PRODUCT USED FOR UNKNOWN INDICATION
     Route: 042
     Dates: start: 20131104, end: 20131105
  4. OMEPRAZOLE MYLAN [Suspect]
     Indication: PRODUCT USED FOR UNKNOWN INDICATION
     Route: 042
     Dates: start: 20131104, end: 20131105
  5. COROTROPE [Suspect]
     Indication: PRODUCT USED FOR UNKNOWN INDICATION
     Route: 042
     Dates: start: 20131104, end: 20131105
  6. PARACETAMOL [Concomitant]
     Indication: PRODUCT USED FOR UNKNOWN INDICATION
     Route: 042
     Dates: start: 20131104, end: 20131106

REACTIONS (5)
  - Blood creatine phosphokinase increased [Recovered/Resolved]
  - Hepatic failure [Recovered/Resolved]
  - Hepatitis acute [Recovered/Resolved]
  - Pyrexia [Recovered/Resolved]
  - Blood lactate dehydrogenase increased [Recovered/Resolved]
